FAERS Safety Report 6311810-8 (Version None)
Quarter: 2009Q3

REPORT INFORMATION
  Report Type: 
  Country: None (occurrence: None)
  Receive Date: 20090817
  Receipt Date: 20090816
  Transmission Date: 20100115
  Serious: Yes (Other)
  Sender: FDA-Public Use
  Company Number: US-BAYER-200924952NA

PATIENT
  Age: 14 Year
  Sex: Male

DRUGS (1)
  1. CAMPATH [Suspect]
     Indication: ANAEMIA HAEMOLYTIC AUTOIMMUNE
     Dates: end: 20081201

REACTIONS (4)
  - ANAEMIA [None]
  - CEREBRAL DISORDER [None]
  - LYMPHOCYTE COUNT INCREASED [None]
  - MULTIPLE SCLEROSIS [None]
